FAERS Safety Report 10366635 (Version 1)
Quarter: 2014Q3

REPORT INFORMATION
  Report Type: Spontaneous
  Country: ES (occurrence: ES)
  Receive Date: 20140806
  Receipt Date: 20140806
  Transmission Date: 20150326
  Serious: Yes (Death, Other)
  Sender: FDA-Public Use
  Company Number: ES-TAKEDA-2014TUS007102

PATIENT
  Age: 52 Year
  Sex: Male

DRUGS (1)
  1. COLCHICINE. [Suspect]
     Active Substance: COLCHICINE
     Indication: GOUT
     Dosage: 1 MG, DURING THE 8 HOURS
     Route: 065

REACTIONS (3)
  - Multi-organ failure [Fatal]
  - Toxicity to various agents [Unknown]
  - Overdose [Unknown]
